FAERS Safety Report 20475272 (Version 2)
Quarter: 2022Q1

REPORT INFORMATION
  Report Type: Spontaneous
  Country: BR (occurrence: None)
  Receive Date: 20220215
  Receipt Date: 20220322
  Transmission Date: 20220424
  Serious: Yes (Other)
  Sender: FDA-Public Use
  Company Number: 2022A067124

PATIENT
  Age: 72 Year
  Sex: Male

DRUGS (5)
  1. SYMBICORT [Suspect]
     Active Substance: BUDESONIDE\FORMOTEROL FUMARATE DIHYDRATE
     Indication: Asthma
     Dosage: 2 INHALATIONS IN THE MORNING; 2 INHALATIONS AT NIGHT, TWO TIMES A DAY
     Route: 055
     Dates: start: 2011
  2. GLIFAGE [Concomitant]
     Active Substance: METFORMIN HYDROCHLORIDE
  3. ENALAPRIL [Concomitant]
     Active Substance: ENALAPRIL
  4. GLYCLAZIDE [Concomitant]
  5. ATENOLOL [Concomitant]
     Active Substance: ATENOLOL

REACTIONS (9)
  - Asthma [Recovered/Resolved]
  - Tinnitus [Recovered/Resolved]
  - Dysgeusia [Not Recovered/Not Resolved]
  - Pain in extremity [Recovered/Resolved]
  - Influenza [Recovered/Resolved]
  - Cough [Recovered/Resolved]
  - Depression [Not Recovered/Not Resolved]
  - Intentional product misuse [Recovered/Resolved]
  - Product administration error [Not Recovered/Not Resolved]

NARRATIVE: CASE EVENT DATE: 20110101
